FAERS Safety Report 10151157 (Version 3)
Quarter: 2014Q3

REPORT INFORMATION
  Report Type: Spontaneous
  Country: US (occurrence: US)
  Receive Date: 20140504
  Receipt Date: 20140811
  Transmission Date: 20150326
  Serious: Yes (Life-Threatening, Hospitalization)
  Sender: FDA-Public Use
  Company Number: 2014SP002297

PATIENT
  Sex: Female
  Weight: 65 kg

DRUGS (13)
  1. REMERON [Concomitant]
     Active Substance: MIRTAZAPINE
  2. OXALIPLATIN. [Suspect]
     Active Substance: OXALIPLATIN
     Indication: COLON CANCER STAGE III
     Route: 042
     Dates: start: 20120703
  3. FLUOROURACIL. [Suspect]
     Active Substance: FLUOROURACIL
     Indication: COLON CANCER STAGE III
     Route: 041
     Dates: start: 20120703
  4. FOLINIC ACID [Suspect]
     Active Substance: LEUCOVORIN
     Indication: COLON CANCER STAGE III
     Route: 042
     Dates: start: 20120703
  5. FLUOROURACIL. [Suspect]
     Active Substance: FLUOROURACIL
     Indication: COLON CANCER STAGE III
     Route: 042
     Dates: start: 20120703
  6. AMBIEN [Concomitant]
     Active Substance: ZOLPIDEM TARTRATE
  7. LAMICTAL [Concomitant]
     Active Substance: LAMOTRIGINE
  8. WELLBUTRIN XL [Concomitant]
     Active Substance: BUPROPION HYDROCHLORIDE
  9. ABILIFY [Concomitant]
     Active Substance: ARIPIPRAZOLE
  10. EFFEXOR [Concomitant]
     Active Substance: VENLAFAXINE HYDROCHLORIDE
  11. KLONOPIN [Concomitant]
     Active Substance: CLONAZEPAM
  12. TOPAMAX [Concomitant]
     Active Substance: TOPIRAMATE
  13. CELECOXIB. [Suspect]
     Active Substance: CELECOXIB
     Indication: COLON CANCER STAGE III
     Route: 048
     Dates: start: 20120703

REACTIONS (2)
  - Depression [Unknown]
  - Suicidal ideation [Unknown]

NARRATIVE: CASE EVENT DATE: 20140401
